FAERS Safety Report 11740269 (Version 2)
Quarter: 2015Q4

REPORT INFORMATION
  Report Type: Spontaneous
  Country: US (occurrence: US)
  Receive Date: 20151110
  Receipt Date: 20151120
  Transmission Date: 20160304
  Serious: No
  Sender: FDA-Public Use
  Company Number: US-ELI_LILLY_AND_COMPANY-US201111004060

PATIENT
  Age: 77 Year
  Sex: Female

DRUGS (3)
  1. FORTEO [Suspect]
     Active Substance: TERIPARATIDE
     Dosage: 20 UG, QD
  2. FORTEO [Suspect]
     Active Substance: TERIPARATIDE
     Dosage: 20 UG, QD
  3. FORTEO [Suspect]
     Active Substance: TERIPARATIDE
     Indication: OSTEOPOROSIS
     Dosage: 20 UG, QD
     Dates: start: 201109

REACTIONS (11)
  - Back pain [Unknown]
  - Pain in extremity [Recovering/Resolving]
  - Crying [Unknown]
  - General physical health deterioration [Unknown]
  - Compression fracture [Unknown]
  - Memory impairment [Not Recovered/Not Resolved]
  - Stress [Unknown]
  - Fear [Unknown]
  - Fall [Recovered/Resolved]
  - Spinal column injury [Unknown]
  - Back disorder [Unknown]

NARRATIVE: CASE EVENT DATE: 20121130
